FAERS Safety Report 9286504 (Version 2)
Quarter: 2013Q2

REPORT INFORMATION
  Report Type: Spontaneous
  Country: FR (occurrence: FR)
  Receive Date: 20130513
  Receipt Date: 20130613
  Transmission Date: 20140414
  Serious: Yes (Other)
  Sender: FDA-Public Use
  Company Number: FR-BAYER-2013-056251

PATIENT
  Age: 42 Year
  Sex: Male
  Weight: 80 kg

DRUGS (3)
  1. BETAFERON [Suspect]
     Indication: MULTIPLE SCLEROSIS
     Dosage: UNK
     Dates: start: 2009
  2. BETAFERON [Suspect]
     Indication: MULTIPLE SCLEROSIS
     Dosage: 250 ?G, EVERY TWO DAYS
     Dates: start: 20130422, end: 20130503
  3. BETAFERON [Suspect]
     Indication: MULTIPLE SCLEROSIS
     Dosage: 250 MG/ML, INJECTION EVERY 2ND DAY
     Route: 058
     Dates: end: 20130504

REACTIONS (6)
  - Hyperchlorhydria [Recovered/Resolved]
  - Dyspepsia [Recovered/Resolved]
  - Paraesthesia [Recovered/Resolved]
  - Sleep disorder [Recovered/Resolved]
  - Drug ineffective [None]
  - Inappropriate schedule of drug administration [None]
